FAERS Safety Report 8503456 (Version 3)
Quarter: 2012Q4

REPORT INFORMATION
  Report Type: 
  Country: US (occurrence: None)
  Receive Date: 20120404
  Receipt Date: 20120905
  Transmission Date: 20130627
  Serious: Yes (Death, Hospitalization, Other)
  Sender: FDA-Public Use
  Company Number: AUR-APL-2012-01642

PATIENT
  Age: 69 Year
  Sex: Male

DRUGS (9)
  1. METFORMIN HYDROCHLORIDE [Suspect]
     Indication: PRODUCT USED FOR UNKNOWN INDICATION
  2. CLOPIDOGREL (CLOPIDOGREL) [Concomitant]
  3. GABAPENTIN [Concomitant]
  4. GLIPIZIDE [Concomitant]
  5. LISINOPRIL [Concomitant]
  6. METOPROLOL TARTRATE [Concomitant]
  7. OMEPRAZOLE [Concomitant]
  8. ROSUVASTATIN (ROSUVASTATIN) [Concomitant]
  9. SERTRALINE HYDROCHLORIDE [Concomitant]

REACTIONS (20)
  - Lactic acidosis [None]
  - Abdominal pain [None]
  - Nausea [None]
  - Vomiting [None]
  - Hyperhidrosis [None]
  - Gastrointestinal sounds abnormal [None]
  - Abdominal rigidity [None]
  - Abdominal tenderness [None]
  - Occult blood positive [None]
  - Faecaloma [None]
  - Intestinal dilatation [None]
  - Lung infiltration [None]
  - Sepsis [None]
  - Hyperkalaemia [None]
  - Acidosis [None]
  - Drug level above therapeutic [None]
  - White blood cell count increased [None]
  - Blood creatinine increased [None]
  - Blood urea increased [None]
  - Blood glucose increased [None]
